FAERS Safety Report 11537213 (Version 1)
Quarter: 2015Q3

REPORT INFORMATION
  Report Type: Spontaneous
  Country: BR (occurrence: BR)
  Receive Date: 20150922
  Receipt Date: 20150922
  Transmission Date: 20151125
  Serious: Yes (Hospitalization, Other)
  Sender: FDA-Public Use
  Company Number: BR-ASTRAZENECA-2015SE18163

PATIENT
  Age: 10400 Day
  Sex: Female

DRUGS (3)
  1. LUFTAL [Concomitant]
     Indication: FLATULENCE
     Dosage: AS REQUIRED
     Dates: end: 201503
  2. MULTIVITAMINS [Concomitant]
     Active Substance: VITAMINS
  3. NEXIUM [Suspect]
     Active Substance: ESOMEPRAZOLE MAGNESIUM
     Indication: DYSPEPSIA
     Route: 048
     Dates: start: 20150220, end: 201503

REACTIONS (2)
  - Abortion spontaneous [Recovered/Resolved]
  - Exposure during pregnancy [Recovered/Resolved]

NARRATIVE: CASE EVENT DATE: 20150220
